FAERS Safety Report 8549855-X (Version None)
Quarter: 2012Q3

REPORT INFORMATION
  Report Type: 
  Country: None (occurrence: None)
  Receive Date: 20120730
  Receipt Date: 20110715
  Transmission Date: 20120928
  Serious: No
  Sender: FDA-Public Use
  Company Number: US-GLAXOSMITHKLINE-A0936952A

PATIENT
  Age: 55 Year
  Sex: Female
  Weight: 106.8 kg

DRUGS (14)
  1. FUROSEMIDE [Concomitant]
  2. CARVEDILOL [Concomitant]
  3. WATER PILL [Concomitant]
  4. IMITREX [Suspect]
     Indication: MIGRAINE
     Dosage: 100MG AS REQUIRED
     Route: 048
     Dates: start: 20101201, end: 20110707
  5. CRESTOR [Concomitant]
  6. ASPIRIN [Concomitant]
  7. VITAMIN D [Concomitant]
  8. FIBER SUPPLEMENT [Concomitant]
  9. ZOLOFT [Concomitant]
  10. POTASSIUM CHLORIDE [Concomitant]
  11. DIOVAN [Concomitant]
  12. RYTHMOL [Concomitant]
  13. NEXIUM [Concomitant]
  14. ZOLPIDEM [Concomitant]

REACTIONS (6)
  - DIZZINESS [None]
  - FEELING ABNORMAL [None]
  - NAUSEA [None]
  - HYPERHIDROSIS [None]
  - EOSINOPHIL COUNT INCREASED [None]
  - DYSGEUSIA [None]
